FAERS Safety Report 19049078 (Version 7)
Quarter: 2021Q3

REPORT INFORMATION
  Report Type: Report from Study
  Country: AR (occurrence: AR)
  Receive Date: 20210323
  Receipt Date: 20210726
  Transmission Date: 20211014
  Serious: Yes (Hospitalization, Other)
  Sender: FDA-Public Use
  Company Number: NVSC2021AR063455

PATIENT
  Age: 55 Year
  Sex: Male

DRUGS (3)
  1. COSENTYX [Suspect]
     Active Substance: SECUKINUMAB
     Indication: ANKYLOSING SPONDYLITIS
     Dosage: 150 MG, QMO
     Route: 058
     Dates: start: 20181026
  2. PREGABALINE [Concomitant]
     Active Substance: PREGABALIN
     Indication: SPONDYLITIS
     Dosage: UNK, QN
     Route: 065
  3. IM 75 [Concomitant]
     Indication: SPONDYLITIS
     Dosage: UNK, QN
     Route: 065

REACTIONS (7)
  - Pain in extremity [Recovered/Resolved]
  - Dyspnoea [Unknown]
  - Muscle spasms [Unknown]
  - Pain [Unknown]
  - Deep vein thrombosis [Unknown]
  - Weight increased [Unknown]
  - Lacrimation increased [Unknown]

NARRATIVE: CASE EVENT DATE: 20200101
